FAERS Safety Report 21297884 (Version 3)
Quarter: 2022Q3

REPORT INFORMATION
  Report Type: Spontaneous
  Country: FR (occurrence: FR)
  Receive Date: 20220906
  Receipt Date: 20220914
  Transmission Date: 20221027
  Serious: Yes (Hospitalization, Other)
  Sender: FDA-Public Use
  Company Number: None

PATIENT
  Age: 82 Year
  Sex: Male

DRUGS (12)
  1. COMIRNATY [Suspect]
     Active Substance: TOZINAMERAN
     Indication: COVID-19 immunisation
     Dosage: DOSE 4 (BOOSTER), 30 UG SINGLE
     Route: 030
     Dates: start: 20220427, end: 20220427
  2. LANSOPRAZOLE [Suspect]
     Active Substance: LANSOPRAZOLE
     Indication: Gastritis
     Dosage: 1 DOSAGE FORM A DAY
     Route: 048
     Dates: end: 20220620
  3. BILASTINE [Suspect]
     Active Substance: BILASTINE
     Indication: Hypersensitivity
     Dosage: 20 MG, 1X/DAY (QD)
     Route: 048
     Dates: end: 20220618
  4. ALPRAZOLAM [Suspect]
     Active Substance: ALPRAZOLAM
     Indication: Anxiety
     Dosage: 0.38 MILLIGRAM, QD
     Route: 048
     Dates: end: 20220614
  5. PINAVERIUM BROMIDE [Suspect]
     Active Substance: PINAVERIUM BROMIDE
     Indication: Diverticulum
     Dosage: 300 MILLIGRAM, QD
     Route: 048
     Dates: end: 20220618
  6. ZESTORETIC [Suspect]
     Active Substance: HYDROCHLOROTHIAZIDE\LISINOPRIL
     Indication: Hypertension
     Dosage: 20/12.5 MILLIGRAM, QD
     Route: 048
     Dates: end: 20220618
  7. ACTIVATED CHARCOAL\YEAST [Suspect]
     Active Substance: ACTIVATED CHARCOAL\YEAST
     Indication: Diverticulum
     Dosage: 3 DOSAGE FORMS A DAY (QD)
     Route: 048
     Dates: end: 20220620
  8. METEOSPASMYL (ALVERINE CITRATE\DIMETHICONE) [Suspect]
     Active Substance: ALVERINE CITRATE\DIMETHICONE
     Indication: Diverticulum
     Dosage: 3 DOSAGE FORM A DAY (QD)
     Route: 048
     Dates: end: 20220618
  9. ALVERINE [Suspect]
     Active Substance: ALVERINE
     Indication: Diverticulum
     Dosage: 3 DOSAGE FORM, QD
     Dates: end: 20220618
  10. FOLIC ACID [Concomitant]
     Active Substance: FOLIC ACID
     Dosage: 5 MILLIGRAM, Q1HR
     Route: 048
  11. POTASSIUM CHLORIDE [Concomitant]
     Active Substance: POTASSIUM CHLORIDE
     Dosage: 1800 MG, 1X/DAY (QD)
     Route: 048
  12. ACETAMINOPHEN [Concomitant]
     Active Substance: ACETAMINOPHEN
     Dosage: 1 DF, AS NEEDED
     Route: 048

REACTIONS (20)
  - Off label use [Unknown]
  - Immunisation [Unknown]
  - Cytopenia [Unknown]
  - Product use in unapproved indication [Unknown]
  - Myositis [Recovered/Resolved]
  - Lupus-like syndrome [Recovered/Resolved]
  - Pancytopenia [Recovering/Resolving]
  - Asthenia [Unknown]
  - Myalgia [Unknown]
  - Gait disturbance [Unknown]
  - Decreased appetite [Unknown]
  - Weight decreased [Unknown]
  - Erythema [Unknown]
  - Eczema [Unknown]
  - Angina bullosa haemorrhagica [Unknown]
  - Thrombocytopenia [Unknown]
  - Dry mouth [Unknown]
  - Condition aggravated [Unknown]
  - Axonal neuropathy [Unknown]
  - Liver disorder [Unknown]

NARRATIVE: CASE EVENT DATE: 20220401
